FAERS Safety Report 11035307 (Version 6)
Quarter: 2018Q3

REPORT INFORMATION
  Report Type: Spontaneous
  Country: US (occurrence: US)
  Receive Date: 20150415
  Receipt Date: 20180819
  Transmission Date: 20181010
  Serious: Yes (Death, Hospitalization)
  Sender: FDA-Public Use
  Company Number: US-JNJFOC-20140218421

PATIENT
  Age: 71 Year
  Sex: Male

DRUGS (3)
  1. XARELTO [Suspect]
     Active Substance: RIVAROXABAN
     Indication: CEREBROVASCULAR ACCIDENT PROPHYLAXIS
     Route: 048
     Dates: start: 20121030, end: 20130225
  2. XARELTO [Suspect]
     Active Substance: RIVAROXABAN
     Indication: THROMBOSIS PROPHYLAXIS
     Route: 048
     Dates: start: 20121030, end: 20130225
  3. XARELTO [Suspect]
     Active Substance: RIVAROXABAN
     Indication: ATRIAL FIBRILLATION
     Route: 048
     Dates: start: 20121030, end: 20130225

REACTIONS (7)
  - Gastrointestinal haemorrhage [Unknown]
  - Pain [Unknown]
  - Anxiety [Unknown]
  - Emotional disorder [Unknown]
  - General physical health deterioration [Unknown]
  - Anhedonia [Unknown]
  - Injury [Unknown]

NARRATIVE: CASE EVENT DATE: 20130225
